FAERS Safety Report 11428598 (Version 1)
Quarter: 2015Q3

REPORT INFORMATION
  Report Type: Spontaneous
  Country: US (occurrence: US)
  Receive Date: 20150828
  Receipt Date: 20150828
  Transmission Date: 20151125
  Serious: No
  Sender: FDA-Public Use
  Company Number: US-ROCHE-1190981

PATIENT
  Sex: Female

DRUGS (2)
  1. PEGASYS [Suspect]
     Active Substance: PEGINTERFERON ALFA-2A
     Indication: CHRONIC HEPATITIS C
     Route: 058
     Dates: start: 20130215
  2. RIBASPHERE [Suspect]
     Active Substance: RIBAVIRIN
     Indication: CHRONIC HEPATITIS C
     Dosage: DIVIDED DOSES 400/400
     Route: 065
     Dates: start: 20130215

REACTIONS (8)
  - Asthenia [Unknown]
  - Viral load undetectable [Unknown]
  - Chills [Unknown]
  - Insomnia [Unknown]
  - Headache [Unknown]
  - Dyspnoea [Unknown]
  - Pain [Unknown]
  - Back pain [Unknown]
